FAERS Safety Report 5859725-3 (Version None)
Quarter: 2008Q3

REPORT INFORMATION
  Report Type: 
  Country: None (occurrence: None)
  Receive Date: 20080827
  Receipt Date: 20080820
  Transmission Date: 20090109
  Serious: Yes (Hospitalization)
  Sender: FDA-Public Use
  Company Number: CO-BAXTER-2008BH007604

PATIENT
  Age: 65 Year
  Sex: Female

DRUGS (1)
  1. TISSUCOL/TISSEEL KIT STIM3 [Suspect]
     Indication: DRUG USE FOR UNKNOWN INDICATION
     Dosage: DOSE UNIT:UNKNOWN
     Route: 042

REACTIONS (1)
  - MENINGITIS ASEPTIC [None]
